FAERS Safety Report 10407954 (Version 1)
Quarter: 2014Q3

REPORT INFORMATION
  Report Type: Spontaneous
  Country: US (occurrence: US)
  Receive Date: 20140825
  Receipt Date: 20140825
  Transmission Date: 20150326
  Serious: Yes (Death, Other)
  Sender: FDA-Public Use
  Company Number: US-ASTRAZENECA-2014SE62905

PATIENT
  Age: 66 Year
  Sex: Female
  Weight: 79.4 kg

DRUGS (10)
  1. PRILOSEC [Suspect]
     Active Substance: OMEPRAZOLE MAGNESIUM
     Route: 048
  2. MULTIVITAMIN [Suspect]
     Active Substance: VITAMINS
     Route: 065
  3. OLYSIO [Concomitant]
     Active Substance: SIMEPREVIR
     Dates: start: 201406
  4. MEGAOXIOD [Concomitant]
  5. MIRALAX [Concomitant]
     Active Substance: POLYETHYLENE GLYCOL 3350
  6. VALTRAX [Concomitant]
  7. PROCARDIA XL [Suspect]
     Active Substance: NIFEDIPINE
     Route: 048
  8. ASPIRIN. [Suspect]
     Active Substance: ASPIRIN
     Indication: DIABETES MELLITUS
     Route: 048
  9. SOVALDI [Suspect]
     Active Substance: SOFOSBUVIR
     Indication: HEPATITIS C
     Route: 048
     Dates: start: 201406
  10. LEXAPRO [Suspect]
     Active Substance: ESCITALOPRAM OXALATE
     Route: 048

REACTIONS (2)
  - Headache [Unknown]
  - Death [Fatal]

NARRATIVE: CASE EVENT DATE: 20140630
